FAERS Safety Report 6021554-8 (Version None)
Quarter: 2008Q4

REPORT INFORMATION
  Report Type: 
  Country: None (occurrence: None)
  Receive Date: 20081229
  Receipt Date: 20081217
  Transmission Date: 20090506
  Serious: Yes (Hospitalization, Other)
  Sender: FDA-Public Use
  Company Number: PHHY2008BR32535

PATIENT
  Age: 17 Year
  Sex: Male

DRUGS (8)
  1. TRILEPTAL [Suspect]
     Dosage: 300 MG, BID
     Route: 048
  2. TRILEPTAL [Suspect]
     Dosage: 600 MG, TID
     Route: 048
  3. TRILEPTAL [Suspect]
     Dosage: 600 MG,1 TABLET IN THE MORNING AND 1 TABLET AT NIGHT PLUS TRILEPTAL 300 MG, ONE AND A HALF AT NIGHT.
     Route: 048
  4. CALCIUM [Concomitant]
     Indication: VITAMIN SUPPLEMENTATION
     Dosage: UNK
     Route: 065
  5. PHENOBARBITAL TAB [Concomitant]
     Indication: CONVULSION
     Dosage: 10 DROPS IN THE MORNING AND 15 DROPS AT NIGHT
     Route: 065
  6. HIDANTAL [Concomitant]
     Indication: CONVULSION
     Dosage: TWO TABLETS DAILY
     Route: 048
  7. CITALOPRAM [Concomitant]
     Indication: DEPRESSION
     Dosage: ONE TABLET A DAY
     Route: 048
  8. LIORESAL [Concomitant]
     Indication: CLONUS
     Dosage: 1/4 TABLET BID
     Route: 048

REACTIONS (5)
  - COLD SWEAT [None]
  - CONSTIPATION [None]
  - CONVULSION [None]
  - DIZZINESS [None]
  - VISUAL ACUITY REDUCED [None]
